FAERS Safety Report 5689651-4 (Version None)
Quarter: 2008Q1

REPORT INFORMATION
  Report Type: 
  Country: None (occurrence: None)
  Receive Date: 20080328
  Receipt Date: 20080317
  Transmission Date: 20080703
  Serious: Yes (Other)
  Sender: FDA-Public Use
  Company Number: 2008-01881

PATIENT
  Age: 45 Year
  Sex: Female

DRUGS (3)
  1. TRELSTAR DEPOT [Suspect]
     Indication: HORMONE SUPPRESSION THERAPY
     Dosage: 3.75 MG, INTRAMUSCULAR
     Route: 030
     Dates: start: 20060118, end: 20070828
  2. TAMOXIFEN CITRATE [Suspect]
     Indication: HORMONE SUPPRESSION THERAPY
     Dosage: 20 MG, ORAL
     Route: 048
     Dates: start: 20061108, end: 20070922
  3. EXEMESTANE [Suspect]
     Indication: HORMONE SUPPRESSION THERAPY
     Dosage: 25 MG, ORAL
     Route: 048
     Dates: start: 20060301, end: 20061107

REACTIONS (5)
  - ABDOMINAL PAIN [None]
  - BACK PAIN [None]
  - BONE PAIN [None]
  - HYPERCHOLESTEROLAEMIA [None]
  - HYPERTRIGLYCERIDAEMIA [None]
